FAERS Safety Report 8246114-X (Version None)
Quarter: 2012Q1

REPORT INFORMATION
  Report Type: 
  Country: None (occurrence: None)
  Receive Date: 20120330
  Receipt Date: 20120319
  Transmission Date: 20120608
  Serious: Yes (Hospitalization, Disabling, Other)
  Sender: FDA-Public Use
  Company Number: PHHY2012NZ021109

PATIENT
  Sex: Male
  Weight: 143.3 kg

DRUGS (5)
  1. CLOZARIL [Suspect]
     Indication: SCHIZOPHRENIA
     Dosage: 400 MG, UNK
     Route: 048
     Dates: start: 20110524, end: 20120313
  2. QUETIAPINE [Concomitant]
     Indication: ANXIETY
     Dosage: 100 MG, NOCTE
     Route: 048
  3. METFORMIN HCL [Concomitant]
     Indication: OVERWEIGHT
     Dosage: 500 MG, BID
     Route: 048
  4. LAXOL [Concomitant]
     Dosage: 2 DF, MANE
  5. FLUOXETINE [Concomitant]
     Indication: AFFECTIVE DISORDER
     Dosage: 20 MG, MANE
     Route: 048

REACTIONS (17)
  - GAMMA-GLUTAMYLTRANSFERASE INCREASED [None]
  - ALANINE AMINOTRANSFERASE INCREASED [None]
  - FAECAL VOLUME INCREASED [None]
  - HEPATIC FUNCTION ABNORMAL [None]
  - DYSLIPIDAEMIA [None]
  - CONSTIPATION [None]
  - SLEEP APNOEA SYNDROME [None]
  - OBESITY [None]
  - HALLUCINATION, AUDITORY [None]
  - MENTAL RETARDATION [None]
  - BLOOD TRIGLYCERIDES INCREASED [None]
  - RED CELL DISTRIBUTION WIDTH INCREASED [None]
  - WEIGHT INCREASED [None]
  - ABNORMAL BEHAVIOUR [None]
  - OPPOSITIONAL DEFIANT DISORDER [None]
  - AFFECT LABILITY [None]
  - HIGH DENSITY LIPOPROTEIN DECREASED [None]
